FAERS Safety Report 23237382 (Version 1)
Quarter: 2023Q4

REPORT INFORMATION
  Report Type: Report from Study
  Country: US (occurrence: US)
  Receive Date: 20231128
  Receipt Date: 20231128
  Transmission Date: 20240109
  Serious: Yes (Death, Other)
  Sender: FDA-Public Use
  Company Number: US-BAYER-2023A163889

PATIENT
  Age: 45 Year
  Sex: Male

DRUGS (3)
  1. STIVARGA [Suspect]
     Active Substance: REGORAFENIB
     Indication: Rectal cancer
     Dosage: 80 MG, QD (21 DAYS ON, 7 DAYS OFF OF A 28 DAY CYCLE)
     Route: 048
     Dates: start: 20231110
  2. STIVARGA [Suspect]
     Active Substance: REGORAFENIB
     Indication: Colon cancer
  3. LONSURF [Concomitant]
     Active Substance: TIPIRACIL HYDROCHLORIDE\TRIFLURIDINE
     Indication: Colorectal cancer
     Dosage: 20MG/8.19MG ORAL .TAKE 4 TABLETS TWICE DAILY ON DAYS 1- 5 AND DAYS 8- 12 OF A 28 DAY CYCLE
     Route: 048
     Dates: start: 20230629

REACTIONS (6)
  - Illness [None]
  - Fluid intake reduced [None]
  - Abdominal pain upper [Recovering/Resolving]
  - Vomiting [Recovering/Resolving]
  - Death [Fatal]
  - Off label use [None]

NARRATIVE: CASE EVENT DATE: 20231110
